FAERS Safety Report 6214669-2 (Version None)
Quarter: 2009Q2

REPORT INFORMATION
  Report Type: 
  Country: None (occurrence: None)
  Receive Date: 20090604
  Receipt Date: 20090526
  Transmission Date: 20091009
  Serious: Yes (Death, Other)
  Sender: FDA-Public Use
  Company Number: AU-PFIZER INC-2009217738

PATIENT
  Age: 65 Year

DRUGS (2)
  1. LYRICA [Suspect]
     Dosage: UNK
  2. ORDINE [Concomitant]
     Indication: PALLIATIVE CARE
     Dosage: UNK

REACTIONS (9)
  - ACTIVITIES OF DAILY LIVING IMPAIRED [None]
  - CHOKING [None]
  - CONSCIOUSNESS FLUCTUATING [None]
  - CONSTIPATION [None]
  - DELUSION [None]
  - DRY MOUTH [None]
  - MENTAL IMPAIRMENT [None]
  - MYOCARDIAL INFARCTION [None]
  - RENAL FAILURE [None]
